FAERS Safety Report 18751564 (Version 1)
Quarter: 2021Q1

REPORT INFORMATION
  Report Type: Spontaneous
  Country: US (occurrence: US)
  Receive Date: 20210118
  Receipt Date: 20210118
  Transmission Date: 20210419
  Serious: No
  Sender: FDA-Public Use
  Company Number: US-INDIVIOR US-INDV-127248-2020

PATIENT
  Age: 30 Year
  Sex: Female

DRUGS (10)
  1. ARISTADA [Concomitant]
     Active Substance: ARIPIPRAZOLE LAUROXIL
     Indication: BIPOLAR DISORDER
     Dosage: UNKNOWN, ONCE IN EVERY 8 WEEKS
     Route: 030
     Dates: start: 20200909
  2. ABILIFY MAINTENA [Concomitant]
     Active Substance: ARIPIPRAZOLE
     Indication: BIPOLAR DISORDER
     Dosage: 400 MG, ONCE IN A MONTH
     Route: 030
     Dates: start: 20200317, end: 20200902
  3. SUBLOCADE [Suspect]
     Active Substance: BUPRENORPHINE
     Indication: SUBSTANCE USE DISORDER
     Dosage: 100 MG, QMO (FIRST INJECTION)
     Route: 058
     Dates: start: 20200707, end: 202008
  4. SUBLOCADE [Suspect]
     Active Substance: BUPRENORPHINE
     Dosage: 100 MG, QMO (FOURTH INJECTION)
     Route: 058
     Dates: start: 20201008
  5. ABILIFY MAINTENA [Concomitant]
     Active Substance: ARIPIPRAZOLE
     Indication: DEPRESSION
  6. SUBOXONE [Suspect]
     Active Substance: BUPRENORPHINE HYDROCHLORIDE\NALOXONE HYDROCHLORIDE
     Dosage: 8 MG QD
     Route: 060
     Dates: start: 20200930
  7. SUBLOCADE [Suspect]
     Active Substance: BUPRENORPHINE
     Dosage: 100 MG, QMO (SECOND INJECTION)
     Route: 058
     Dates: start: 20200811, end: 202009
  8. SUBLOCADE [Suspect]
     Active Substance: BUPRENORPHINE
     Indication: SUBSTANCE USE DISORDER
     Dosage: 300 MG, QMO (THIRD INJECTION)
     Route: 058
     Dates: start: 20200909, end: 202010
  9. SUBOXONE [Suspect]
     Active Substance: BUPRENORPHINE HYDROCHLORIDE\NALOXONE HYDROCHLORIDE
     Indication: DRUG WITHDRAWAL SYNDROME
     Dosage: 8 MG, BID
     Route: 060
     Dates: start: 20200903, end: 20200909
  10. ARISTADA [Concomitant]
     Active Substance: ARIPIPRAZOLE LAUROXIL
     Indication: DEPRESSION

REACTIONS (2)
  - Inappropriate schedule of product administration [Recovered/Resolved]
  - Drug withdrawal syndrome [Recovered/Resolved]

NARRATIVE: CASE EVENT DATE: 2020
